FAERS Safety Report 15683677 (Version 1)
Quarter: 2018Q4

REPORT INFORMATION
  Report Type: Spontaneous
  Country: DE (occurrence: DE)
  Receive Date: 20181204
  Receipt Date: 20181204
  Transmission Date: 20190205
  Serious: Yes (Other)
  Sender: FDA-Public Use
  Company Number: DE-AUROBINDO-AUR-APL-2018-058138

PATIENT
  Sex: Male

DRUGS (14)
  1. TAMSULOSIN HEXAL [Concomitant]
     Active Substance: TAMSULOSIN HYDROCHLORIDE
     Indication: PROSTATITIS
     Dosage: 0.4 MG, UNK
     Route: 065
     Dates: start: 2018
  2. CELECOXIB. [Suspect]
     Active Substance: CELECOXIB
     Indication: ANKYLOSING SPONDYLITIS
     Dosage: 200 MILLIGRAM, DAILY,200 MG, QD (IN THE MORNING)
     Route: 065
     Dates: start: 20181105
  3. VOLTAREN FORTE                     /01160501/ [Concomitant]
     Indication: PAIN IN EXTREMITY
     Dosage: UNK
     Route: 065
  4. TAMSULOSIN HEXAL [Concomitant]
     Active Substance: TAMSULOSIN HYDROCHLORIDE
     Indication: PELVIC PAIN
     Dosage: UNK
     Route: 065
  5. CELECOXIB. [Suspect]
     Active Substance: CELECOXIB
     Indication: PAIN IN EXTREMITY
     Dosage: UNK
     Route: 065
  6. PANTOPRAZOL ABZ PROTECT [Concomitant]
     Active Substance: PANTOPRAZOLE SODIUM
     Indication: ANKYLOSING SPONDYLITIS
     Dosage: UNK
     Route: 065
  7. VOLTAREN RESINAT                   /00372305/ [Suspect]
     Active Substance: DICLOFENAC
     Indication: ANKYLOSING SPONDYLITIS
     Dosage: 75 MILLIGRAM, DAILY
     Route: 065
     Dates: start: 201810
  8. BALNEUM HERMAL F                   /00710601/ [Concomitant]
     Indication: DERMATITIS
     Dosage: UNK
     Route: 065
  9. BUDENOFALK [Concomitant]
     Active Substance: BUDESONIDE
     Indication: CROHN^S DISEASE
     Dosage: 3 MILLIGRAM,EVERY OTHER DAY
     Route: 065
  10. VOLTAREN FORTE                     /01160501/ [Concomitant]
     Indication: ANKYLOSING SPONDYLITIS
     Dosage: 2 UNK, ONCE A DAY,23.2 MG/G, BID
     Route: 065
  11. VOLTAREN RESINAT                   /00372305/ [Suspect]
     Active Substance: DICLOFENAC
     Indication: PAIN IN EXTREMITY
     Dosage: UNK
     Route: 065
  12. DILTIAZEM HCL [Concomitant]
     Active Substance: DILTIAZEM HYDROCHLORIDE
     Indication: CROHN^S DISEASE
     Dosage: UNK (AFTER EVERY BOWEL MOVEMENT)
     Route: 065
  13. PANTOPRAZOL ABZ PROTECT [Concomitant]
     Active Substance: PANTOPRAZOLE SODIUM
     Indication: ALVEOLITIS
     Dosage: 40 MG, UNK
     Route: 065
  14. BUDIAIR [Concomitant]
     Active Substance: BUDESONIDE
     Indication: ALVEOLITIS
     Dosage: 200 UG, UNK
     Route: 065

REACTIONS (4)
  - Haematochezia [Unknown]
  - Arthralgia [Unknown]
  - Intestinal haemorrhage [Unknown]
  - Pyrexia [Recovered/Resolved]

NARRATIVE: CASE EVENT DATE: 20181105
